FAERS Safety Report 7512554-7 (Version None)
Quarter: 2011Q2

REPORT INFORMATION
  Report Type: 
  Country: None (occurrence: None)
  Receive Date: 20110531
  Receipt Date: 20110520
  Transmission Date: 20111010
  Serious: Yes (Hospitalization)
  Sender: FDA-Public Use
  Company Number: US-ROCHE-778707

PATIENT
  Age: 46 Year
  Sex: Female
  Weight: 66 kg

DRUGS (3)
  1. TEMOZOLOMIDE [Suspect]
     Indication: GLIOBLASTOMA MULTIFORME
     Dosage: CYCLE-6 WEEKS:75 MG/M2 DAILY,CYCLE-4 WEEKS:150-200MG/M2 ON DAYS 1-5,TOTAL DOSE:375MG
     Route: 048
     Dates: start: 20110503
  2. KEPPRA [Suspect]
     Route: 065
  3. BLINDED BEVACIZUMAB [Suspect]
     Indication: GLIOBLASTOMA MULTIFORME
     Dosage: FREQUENCY:DAY 1 OF WEEKS 4 AND 6,AT BEGINNING OF WEEK 2, DOSE:BLINDED
     Route: 042
     Dates: start: 20110503

REACTIONS (3)
  - CONVULSION [None]
  - DIZZINESS [None]
  - DYSKINESIA [None]
